FAERS Safety Report 9538746 (Version 3)
Quarter: 2013Q4

REPORT INFORMATION
  Report Type: Report from Study
  Country: IL (occurrence: IL)
  Receive Date: 20130920
  Receipt Date: 20131025
  Transmission Date: 20140711
  Serious: Yes (Other)
  Sender: FDA-Public Use
  Company Number: PHHY2013IL103386

PATIENT
  Age: 42 Year
  Sex: Female

DRUGS (2)
  1. SANDOSTATIN LAR [Suspect]
     Indication: PANCREATIC NEUROENDOCRINE TUMOUR
     Dosage: 30 MG, Q2W
     Dates: start: 20121210
  2. SANDOSTATIN LAR [Suspect]
     Indication: CARCINOID TUMOUR
     Dosage: 30 MG, Q2W
     Dates: start: 20130917

REACTIONS (4)
  - Pulmonary mass [Unknown]
  - Pneumonia [Unknown]
  - General physical health deterioration [Unknown]
  - Fatigue [Unknown]
